FAERS Safety Report 9656774 (Version 1)
Quarter: 2013Q4

REPORT INFORMATION
  Report Type: Spontaneous
  Country: GB (occurrence: GB)
  Receive Date: 20131030
  Receipt Date: 20131030
  Transmission Date: 20140711
  Serious: Yes (Disabling, Other)
  Sender: FDA-Public Use
  Company Number: GB-PFIZER INC-2013304426

PATIENT
  Age: 49 Year
  Sex: Male
  Weight: 121.92 kg

DRUGS (6)
  1. CHAMPIX [Suspect]
     Indication: SMOKING CESSATION THERAPY
     Dosage: 1 MG, UNK
     Route: 048
     Dates: start: 20130928, end: 20131012
  2. OMEPRAZOLE [Concomitant]
  3. ATENOLOL [Concomitant]
  4. ACETYLSALICYLIC ACID [Concomitant]
  5. SIMVASTATIN [Concomitant]
  6. RANITIDINE [Concomitant]

REACTIONS (1)
  - Dysthymic disorder [Not Recovered/Not Resolved]
